FAERS Safety Report 6936440-6 (Version None)
Quarter: 2010Q3

REPORT INFORMATION
  Report Type: 
  Country: None (occurrence: None)
  Receive Date: 20100818
  Receipt Date: 20100804
  Transmission Date: 20110219
  Serious: Yes (Death, Hospitalization)
  Sender: FDA-Public Use
  Company Number: A-US2010-38415

PATIENT
  Age: 64 Year
  Sex: Female

DRUGS (10)
  1. TRACLEER [Suspect]
     Indication: PULMONARY ARTERIAL HYPERTENSION
     Dosage: 62.5 MG, BID, ORAL
     Route: 048
     Dates: start: 20100520, end: 20100720
  2. REVATIO [Concomitant]
  3. TORSEMIDE [Concomitant]
  4. PLAQUENIL [Concomitant]
  5. LIDODERM [Concomitant]
  6. PROCRIT [Concomitant]
  7. VITAMIN D [Concomitant]
  8. BENADRYL [Concomitant]
  9. DARVOCET-N (DEXTROPROPOXYPHENE NAPSILATE, PARACETAMOL) [Concomitant]
  10. ACETAMINOPHEN [Concomitant]

REACTIONS (2)
  - CARDIO-RESPIRATORY ARREST [None]
  - LOWER GASTROINTESTINAL HAEMORRHAGE [None]
